FAERS Safety Report 14161298 (Version 7)
Quarter: 2018Q1

REPORT INFORMATION
  Report Type: Spontaneous
  Country: JP (occurrence: JP)
  Receive Date: 20171106
  Receipt Date: 20180219
  Transmission Date: 20180508
  Serious: Yes (Death, Life-Threatening, Hospitalization, Other)
  Sender: FDA-Public Use
  Company Number: JP-JNJFOC-20171103035

PATIENT
  Age: 89 Year
  Sex: Male

DRUGS (8)
  1. DIAZEPAM. [Concomitant]
     Active Substance: DIAZEPAM
     Route: 048
     Dates: start: 20170208
  2. GRANDAXIN [Concomitant]
     Active Substance: TOFISOPAM
     Route: 048
     Dates: start: 20170208
  3. ADETPHOS [Concomitant]
     Active Substance: ADENOSINE TRIPHOSPHATE
     Route: 048
     Dates: start: 20170208
  4. ONGLYZA [Concomitant]
     Active Substance: SAXAGLIPTIN HYDROCHLORIDE
     Indication: DIABETES MELLITUS
     Route: 048
     Dates: start: 20170228, end: 20170328
  5. KETAS [Concomitant]
     Active Substance: IBUDILAST
     Route: 048
     Dates: start: 20170208
  6. METHYCOBAL [Concomitant]
     Active Substance: METHYLCOBALAMIN
     Route: 048
     Dates: start: 20170208
  7. SAXAGLIPTIN MONOHYDRATE [Suspect]
     Active Substance: SAXAGLIPTIN MONOHYDRATE
     Indication: DIABETES MELLITUS
     Route: 065
  8. CANAGLU [Suspect]
     Active Substance: CANAGLIFLOZIN
     Indication: DIABETES MELLITUS
     Route: 048
     Dates: start: 20170314, end: 20170328

REACTIONS (4)
  - Acute coronary syndrome [Unknown]
  - Pneumonia [Unknown]
  - Pancreatic carcinoma [Fatal]
  - Diabetic ketoacidosis [Recovering/Resolving]

NARRATIVE: CASE EVENT DATE: 20170328
